FAERS Safety Report 7008151-2 (Version None)
Quarter: 2010Q3

REPORT INFORMATION
  Report Type: 
  Country: None (occurrence: None)
  Receive Date: 20100920
  Receipt Date: 20100830
  Transmission Date: 20110219
  Serious: Yes (Hospitalization)
  Sender: FDA-Public Use
  Company Number: LEO-2010-00266

PATIENT
  Age: 76 Year
  Sex: Male
  Weight: 86 kg

DRUGS (5)
  1. TACLONEX SCALP [Suspect]
     Indication: PSORIASIS
     Dosage: TOPICAL
     Route: 061
     Dates: start: 20100101, end: 20100302
  2. DAIVONEX (CALCIPOTRIOL) [Concomitant]
  3. DAIVOBET (BETAMETHASONE DIPROPIONATE, CALCIPOTRIOL) [Concomitant]
  4. BETAMETHASONE VALERATE [Concomitant]
  5. SORIATANE [Concomitant]

REACTIONS (8)
  - ECTROPION [None]
  - ERYTHRODERMIC PSORIASIS [None]
  - HYPERKERATOSIS [None]
  - OEDEMA PERIPHERAL [None]
  - OFF LABEL USE [None]
  - PRURITUS [None]
  - SKIN EXFOLIATION [None]
  - WOUND SECRETION [None]
